FAERS Safety Report 8051645-1 (Version None)
Quarter: 2012Q1

REPORT INFORMATION
  Report Type: 
  Country: None (occurrence: None)
  Receive Date: 20120118
  Receipt Date: 20120106
  Transmission Date: 20120608
  Serious: No
  Sender: FDA-Public Use
  Company Number: US-BIOGENIDEC-2011BI027035

PATIENT
  Sex: Male

DRUGS (1)
  1. TYSABRI [Suspect]
     Indication: MULTIPLE SCLEROSIS
     Route: 042
     Dates: start: 20110408

REACTIONS (9)
  - DRUG INEFFECTIVE [None]
  - HEADACHE [None]
  - POOR VENOUS ACCESS [None]
  - MOBILITY DECREASED [None]
  - TOOTHACHE [None]
  - DEPRESSION [None]
  - FACIAL SPASM [None]
  - FALL [None]
  - APHASIA [None]
